FAERS Safety Report 20537320 (Version 1)
Quarter: 2022Q1

REPORT INFORMATION
  Report Type: Spontaneous
  Country: US (occurrence: US)
  Receive Date: 20220302
  Receipt Date: 20220302
  Transmission Date: 20220423
  Serious: No
  Sender: FDA-Public Use
  Company Number: US-PFIZER INC-202200319047

PATIENT

DRUGS (1)
  1. PAXLOVID [Suspect]
     Active Substance: NIRMATRELVIR\RITONAVIR
     Indication: COVID-19
     Dosage: TOOK 1ST DOSE YESTERDAY,TOOK 2ND DOSE THIS MORNING AND THEN THE 3RD DOSE LATER TONIGHT AT 6 ^O^CLOCK
     Dates: start: 20220221

REACTIONS (6)
  - Vision blurred [Recovering/Resolving]
  - Dyschromatopsia [Recovering/Resolving]
  - Ocular hyperaemia [Unknown]
  - Blood pressure increased [Unknown]
  - Heart rate increased [Unknown]
  - Cough [Unknown]

NARRATIVE: CASE EVENT DATE: 20220222
